FAERS Safety Report 6623015-1 (Version None)
Quarter: 2010Q1

REPORT INFORMATION
  Report Type: 
  Country: None (occurrence: None)
  Receive Date: 20100310
  Receipt Date: 20100111
  Transmission Date: 20100710
  Serious: No
  Sender: FDA-Public Use
  Company Number: US-BIOGENIDEC-2010BI000887

PATIENT
  Age: 8 Year
  Sex: Female

DRUGS (1)
  1. AVONEX [Suspect]
     Indication: MULTIPLE SCLEROSIS
     Route: 030
     Dates: start: 20040207

REACTIONS (6)
  - FATIGUE [None]
  - HEADACHE [None]
  - HYPERVENTILATION [None]
  - INFLUENZA LIKE ILLNESS [None]
  - PALLOR [None]
  - RASH [None]
